FAERS Safety Report 7519173-7 (Version None)
Quarter: 2011Q2

REPORT INFORMATION
  Report Type: 
  Country: None (occurrence: None)
  Receive Date: 20110602
  Receipt Date: 20110525
  Transmission Date: 20111010
  Serious: Yes (Hospitalization, Disabling, Other)
  Sender: FDA-Public Use
  Company Number: FR-BAXTER-2010BH020045

PATIENT
  Age: 65 Year
  Sex: Male

DRUGS (18)
  1. MESNA [Suspect]
     Route: 042
     Dates: start: 20080917, end: 20080901
  2. IFOSFAMIDE [Suspect]
     Route: 042
     Dates: start: 20080825, end: 20080826
  3. CISPLATIN [Suspect]
     Route: 042
     Dates: start: 20081113, end: 20081113
  4. DOXORUBICIN HCL [Suspect]
     Indication: BONE SARCOMA
     Route: 042
     Dates: start: 20081113, end: 20081113
  5. MESNA [Suspect]
     Route: 042
     Dates: start: 20081114, end: 20081115
  6. DOXORUBICIN HCL [Suspect]
     Route: 042
     Dates: start: 20080825, end: 20080825
  7. IFOSFAMIDE [Suspect]
     Indication: BONE SARCOMA
     Route: 042
     Dates: start: 20081114, end: 20081115
  8. IFOSFAMIDE [Suspect]
     Route: 042
     Dates: start: 20080917, end: 20080918
  9. IFOSFAMIDE [Suspect]
     Route: 042
     Dates: start: 20080805, end: 20080806
  10. CISPLATIN [Suspect]
     Indication: BONE SARCOMA
     Route: 042
     Dates: start: 20080804, end: 20080804
  11. CISPLATIN [Suspect]
     Route: 042
     Dates: start: 20080916, end: 20080916
  12. IFOSFAMIDE [Suspect]
     Route: 042
     Dates: start: 20081008, end: 20081009
  13. MESNA [Suspect]
     Indication: BONE SARCOMA
     Route: 042
     Dates: start: 20080805, end: 20080806
  14. MESNA [Suspect]
     Route: 042
     Dates: start: 20081008, end: 20081009
  15. MESNA [Suspect]
     Route: 042
     Dates: start: 20080825, end: 20080826
  16. DOXORUBICIN HCL [Suspect]
     Route: 042
     Dates: start: 20080804, end: 20080804
  17. ONDANSERTRON HYDROCHLORIDE [Concomitant]
     Indication: PRODUCT USED FOR UNKNOWN INDICATION
     Route: 042
     Dates: start: 20080804, end: 20081115
  18. METHYLPREDNISOLONE [Concomitant]
     Indication: PRODUCT USED FOR UNKNOWN INDICATION
     Route: 042
     Dates: start: 20080804, end: 20081115

REACTIONS (22)
  - PYREXIA [None]
  - DIARRHOEA [None]
  - RENAL FAILURE ACUTE [None]
  - NAUSEA [None]
  - VOMITING [None]
  - ATRIAL FIBRILLATION [None]
  - CONFUSIONAL STATE [None]
  - STOMATITIS [None]
  - RENAL FAILURE CHRONIC [None]
  - THROMBOCYTOPENIA [None]
  - GASTRITIS [None]
  - FEBRILE BONE MARROW APLASIA [None]
  - HYPOVOLAEMIC SHOCK [None]
  - FUNGAL INFECTION [None]
  - GENERAL PHYSICAL HEALTH DETERIORATION [None]
  - METABOLIC DISORDER [None]
  - SEPSIS [None]
  - HYPOCALCAEMIA [None]
  - HYPERNATRAEMIA [None]
  - MUCOSAL INFLAMMATION [None]
  - DEHYDRATION [None]
  - NEUROPATHY PERIPHERAL [None]
